FAERS Safety Report 19475558 (Version 2)
Quarter: 2021Q3

REPORT INFORMATION
  Report Type: Spontaneous
  Country: US (occurrence: US)
  Receive Date: 20210629
  Receipt Date: 20210809
  Transmission Date: 20211014
  Serious: Yes (Other)
  Sender: FDA-Public Use
  Company Number: US-AMNEAL PHARMACEUTICALS-2021-AMRX-02374

PATIENT
  Sex: Male

DRUGS (1)
  1. ADRENACLICK [Suspect]
     Active Substance: EPINEPHRINE
     Indication: FOOD ALLERGY
     Dosage: UNK
     Route: 065

REACTIONS (3)
  - Device use issue [Unknown]
  - Product container seal issue [Unknown]
  - No adverse event [Unknown]
